FAERS Safety Report 14017038 (Version 1)
Quarter: 2017Q3

REPORT INFORMATION
  Report Type: Spontaneous
  Country: NO (occurrence: NO)
  Receive Date: 20170927
  Receipt Date: 20170927
  Transmission Date: 20171128
  Serious: Yes (Other)
  Sender: FDA-Public Use
  Company Number: NO-TEVA-807589ACC

PATIENT
  Age: 33 Year
  Sex: Male
  Weight: 133 kg

DRUGS (2)
  1. NEOTIGASON [Suspect]
     Active Substance: ACITRETIN
     Indication: HIDRADENITIS
     Dosage: 2 DOSAGE FORMS DAILY; 2 DF, QD (2X25 MG (2 DOSAGE FORMS,1 IN 1 D)
     Route: 065
     Dates: start: 20160928
  2. ZMA [Concomitant]

REACTIONS (3)
  - Rectal haemorrhage [Not Recovered/Not Resolved]
  - Excessive cerumen production [Not Recovered/Not Resolved]
  - Pruritus [Not Recovered/Not Resolved]

NARRATIVE: CASE EVENT DATE: 20161006
